FAERS Safety Report 24219374 (Version 1)
Quarter: 2024Q3

REPORT INFORMATION
  Report Type: Spontaneous
  Country: FR (occurrence: None)
  Receive Date: 20240816
  Receipt Date: 20240816
  Transmission Date: 20241016
  Serious: Yes (Congenital Anomaly, Other)
  Sender: ASTRAZENECA
  Company Number: 2024A186681

PATIENT
  Sex: Male
  Weight: 0.8 kg

DRUGS (9)
  1. QUETIAPINE FUMARATE [Suspect]
     Active Substance: QUETIAPINE FUMARATE
     Indication: Schizophrenia
     Dosage: PRECISE TREATMENT DATES NOT KNOWN; 400MG X3/D
     Route: 064
  2. URAPIDIL [Suspect]
     Active Substance: URAPIDIL
     Indication: Hypertension
     Dosage: 90MG X2 (1-0-1)
     Route: 064
  3. URAPIDIL [Suspect]
     Active Substance: URAPIDIL
     Indication: Schizophrenia
     Dosage: 90MG X2 (1-0-1)
     Route: 064
  4. LITHIUM [Suspect]
     Active Substance: LITHIUM
     Indication: Schizophrenia
     Dosage: 40 MG X2/D (1-0-1)
     Route: 064
  5. HALDOL [Suspect]
     Active Substance: HALOPERIDOL
     Indication: Schizophrenia
     Dosage: 5MG X3/D (1-0-2); EVERY 28 DAY
     Route: 064
  6. NICARDIPINE HYDROCHLORIDE [Suspect]
     Active Substance: NICARDIPINE HYDROCHLORIDE
     Indication: Hypertension
     Dosage: 50MG X3/D (1-1-1)
     Route: 064
  7. TROPATEPINE HYDROCHLORIDE [Suspect]
     Active Substance: TROPATEPINE HYDROCHLORIDE
     Indication: Schizophrenia
     Route: 064
  8. TRANDATE [Suspect]
     Active Substance: LABETALOL HYDROCHLORIDE
     Indication: Hypertension
     Dosage: 400MG X3/D (1-1-1)
     Route: 064
  9. ALDOMET [Suspect]
     Active Substance: METHYLDOPA
     Indication: Hypertension
     Dosage: 1G X3/D (1-1-1)
     Route: 064

REACTIONS (9)
  - Foetal growth restriction [Recovered/Resolved]
  - Bronchopulmonary dysplasia [Recovered/Resolved]
  - Neonatal respiratory distress syndrome [Recovered/Resolved]
  - Hyponatraemia [Recovered/Resolved]
  - Premature baby [Recovered/Resolved]
  - Hypospadias [Recovered/Resolved]
  - Anaemia neonatal [Recovered/Resolved]
  - Jaundice neonatal [Recovered/Resolved]
  - Low birth weight baby [Recovered/Resolved]
